FAERS Safety Report 17283780 (Version 2)
Quarter: 2020Q1

REPORT INFORMATION
  Report Type: Spontaneous
  Country: US (occurrence: US)
  Receive Date: 20200117
  Receipt Date: 20200302
  Transmission Date: 20200409
  Serious: No
  Sender: FDA-Public Use
  Company Number: NVSC2020US008183

PATIENT
  Sex: Female

DRUGS (1)
  1. COSENTYX [Suspect]
     Active Substance: SECUKINUMAB
     Indication: PSORIATIC ARTHROPATHY
     Dosage: 300 MG ONCE WEEKLY FOR 5 WEEKS, THEN ONCE EVERY 4 WEEKS, BENEATH THE SKIN,
     Route: 058

REACTIONS (3)
  - Arthralgia [Unknown]
  - Product dose omission [Unknown]
  - Peripheral swelling [Unknown]
